FAERS Safety Report 14223352 (Version 5)
Quarter: 2018Q2

REPORT INFORMATION
  Report Type: Report from Study
  Country: US (occurrence: US)
  Receive Date: 20171124
  Receipt Date: 20180517
  Transmission Date: 20180711
  Serious: Yes (Hospitalization, Disabling)
  Sender: FDA-Public Use
  Company Number: PHEH2017US037661

PATIENT
  Age: 30 Year
  Sex: Female

DRUGS (6)
  1. BOTOX [Concomitant]
     Active Substance: ONABOTULINUMTOXINA
     Indication: MIGRAINE
     Dosage: UNK UNK, PRN
     Route: 030
  2. COSENTYX [Suspect]
     Active Substance: SECUKINUMAB
     Dosage: UNK
     Route: 058
     Dates: start: 20180120
  3. LUVOX [Concomitant]
     Active Substance: FLUVOXAMINE MALEATE
     Indication: INFLAMMATORY BOWEL DISEASE
     Dosage: UNK
     Route: 048
  4. FLUVOX [Concomitant]
     Indication: POST-TRAUMATIC STRESS DISORDER
     Route: 048
  5. COSENTYX [Suspect]
     Active Substance: SECUKINUMAB
     Indication: PSORIASIS
     Dosage: 300 MG, QMO
     Route: 058
     Dates: start: 20170922
  6. BUDESONIDE. [Concomitant]
     Active Substance: BUDESONIDE
     Indication: INFLAMMATORY BOWEL DISEASE
     Route: 065

REACTIONS (10)
  - Dehydration [Unknown]
  - Nausea [Not Recovered/Not Resolved]
  - Vomiting [Unknown]
  - Gastritis [Unknown]
  - Abdominal pain [Unknown]
  - Gastrointestinal infection [Unknown]
  - Hiatus hernia [Unknown]
  - Colitis ulcerative [Recovered/Resolved with Sequelae]
  - Gastrooesophageal reflux disease [Unknown]
  - Diarrhoea [Unknown]

NARRATIVE: CASE EVENT DATE: 20171108
